FAERS Safety Report 7548092-5 (Version None)
Quarter: 2011Q2

REPORT INFORMATION
  Report Type: 
  Country: None (occurrence: None)
  Receive Date: 20110615
  Receipt Date: 20110518
  Transmission Date: 20111010
  Serious: Yes (Hospitalization, Other)
  Sender: FDA-Public Use
  Company Number: US-BAYER-201029812NA

PATIENT
  Age: 36 Year
  Sex: Female
  Weight: 61.224 kg

DRUGS (7)
  1. YAZ [Suspect]
     Indication: PRODUCT USED FOR UNKNOWN INDICATION
     Dosage: UNK UNK, UNK
     Route: 048
     Dates: start: 20061101, end: 20070901
  2. VITAMIN B COMPLEX CAP [Concomitant]
  3. YASMIN [Suspect]
     Indication: PRODUCT USED FOR UNKNOWN INDICATION
     Dosage: UNK UNK, UNK
     Route: 048
     Dates: start: 20050101, end: 20060801
  4. MULTI-VITAMIN [Concomitant]
  5. ZINC [Concomitant]
  6. CIPROFLOXACIN [Concomitant]
     Dosage: 500 MG, UNK
     Route: 048
     Dates: start: 20070411
  7. ASCORBIC ACID [Concomitant]

REACTIONS (2)
  - BILIARY COLIC [None]
  - GALLBLADDER DISORDER [None]
